FAERS Safety Report 20695214 (Version 4)
Quarter: 2022Q2

REPORT INFORMATION
  Report Type: Spontaneous
  Country: US (occurrence: US)
  Receive Date: 20220411
  Receipt Date: 20220519
  Transmission Date: 20220721
  Serious: No
  Sender: FDA-Public Use
  Company Number: US-GLAXOSMITHKLINE-USCH2022013338

PATIENT
  Age: 1 Year
  Sex: Female

DRUGS (1)
  1. CHILDRENS ADVIL [Suspect]
     Active Substance: IBUPROFEN
     Indication: Pyrexia
     Dosage: 7.5 ML
     Dates: start: 20220406, end: 20220406

REACTIONS (6)
  - Rash erythematous [Recovering/Resolving]
  - Rash macular [Recovering/Resolving]
  - Ill-defined disorder [Recovering/Resolving]
  - Food aversion [Unknown]
  - Wrong technique in product usage process [Unknown]
  - Product complaint [Unknown]

NARRATIVE: CASE EVENT DATE: 20220406
